FAERS Safety Report 14904434 (Version 3)
Quarter: 2018Q4

REPORT INFORMATION
  Report Type: Spontaneous
  Country: US (occurrence: US)
  Receive Date: 20180517
  Receipt Date: 20181227
  Transmission Date: 20190204
  Serious: Yes (Other)
  Sender: FDA-Public Use
  Company Number: US-SA-2017SA164755

PATIENT
  Age: 74 Year
  Sex: Male

DRUGS (6)
  1. LANTUS [Suspect]
     Active Substance: INSULIN GLARGINE
     Dosage: 60 DF,QD
     Route: 051
  2. NOVOLIN R [Suspect]
     Active Substance: INSULIN HUMAN
     Dosage: UNK UNK,UNK
     Route: 065
  3. LANTUS [Suspect]
     Active Substance: INSULIN GLARGINE
     Indication: DIABETES MELLITUS
     Dosage: 50 DF,QD
     Route: 051
  4. LEVEMIR [Concomitant]
     Active Substance: INSULIN DETEMIR
     Dosage: UNK UNK,UNK
     Route: 065
  5. LANTUS [Suspect]
     Active Substance: INSULIN GLARGINE
     Dosage: 70 DF,QD
     Route: 051
     Dates: end: 201706
  6. NOVOLOG [Concomitant]
     Active Substance: INSULIN ASPART
     Dosage: 90 DF,QD
     Route: 065

REACTIONS (7)
  - Back pain [Recovering/Resolving]
  - Pain [Unknown]
  - Gait disturbance [Unknown]
  - Paralysis [Unknown]
  - Injury [Unknown]
  - Pain in extremity [Recovering/Resolving]
  - Arthralgia [Recovered/Resolved]
